FAERS Safety Report 16369697 (Version 1)
Quarter: 2019Q2

REPORT INFORMATION
  Report Type: Spontaneous
  Country: FR (occurrence: FR)
  Receive Date: 20190530
  Receipt Date: 20190530
  Transmission Date: 20190711
  Serious: Yes (Other)
  Sender: FDA-Public Use
  Company Number: FR-TEVA-2019-FR-1056344

PATIENT
  Sex: Female

DRUGS (1)
  1. EFFENTORA 400 MCG [Suspect]
     Active Substance: FENTANYL CITRATE
     Indication: PELVIC PAIN
     Route: 065

REACTIONS (4)
  - Dependence [Not Recovered/Not Resolved]
  - Product use in unapproved indication [Unknown]
  - Product prescribing issue [Unknown]
  - Drug abuse [Unknown]
